FAERS Safety Report 12928631 (Version 2)
Quarter: 2016Q4

REPORT INFORMATION
  Report Type: Report from Study
  Country: US (occurrence: US)
  Receive Date: 20161110
  Receipt Date: 20161122
  Transmission Date: 20170207
  Serious: Yes (Disabling, Other)
  Sender: FDA-Public Use
  Company Number: US-AMGEN-USASL2016154435

PATIENT
  Age: 53 Year
  Sex: Male

DRUGS (1)
  1. ENBREL [Suspect]
     Active Substance: ETANERCEPT
     Indication: PSORIATIC ARTHROPATHY
     Dosage: 50 MG, UNK
     Route: 065
     Dates: start: 20160730

REACTIONS (8)
  - Rash [Unknown]
  - Drug dose omission [Unknown]
  - Inflammation [Unknown]
  - Pruritus [Unknown]
  - Diabetes mellitus [Unknown]
  - Urticaria [Unknown]
  - Psoriasis [Unknown]
  - Disability [Unknown]

NARRATIVE: CASE EVENT DATE: 2016
